FAERS Safety Report 9515619 (Version 2)
Quarter: 2013Q4

REPORT INFORMATION
  Report Type: Report from Study
  Country: JP (occurrence: JP)
  Receive Date: 20130911
  Receipt Date: 20131010
  Transmission Date: 20140711
  Serious: Yes (Death, Other)
  Sender: FDA-Public Use
  Company Number: JP-ASTELLAS-2013US009560

PATIENT
  Age: 81 Year
  Sex: Male

DRUGS (6)
  1. AMBISOME [Suspect]
     Indication: FEBRILE NEUTROPENIA
     Dosage: 175 MG, UID/QD
     Route: 065
     Dates: start: 20130314, end: 20130318
  2. AMBISOME [Suspect]
     Dosage: 140 MG, UID/QD
     Route: 065
     Dates: start: 20130320, end: 20130323
  3. AMBISOME [Suspect]
     Dosage: 175 MG, UID/QD
     Route: 065
     Dates: start: 20130324, end: 20130325
  4. CONCENTRATED RED CELLS [Concomitant]
     Indication: PRODUCT USED FOR UNKNOWN INDICATION
     Dosage: UNK
     Route: 065
  5. ZOSYN [Concomitant]
     Indication: PRODUCT USED FOR UNKNOWN INDICATION
     Dosage: UNK
     Route: 065
     Dates: start: 20130301, end: 20130308
  6. FINIBAX [Concomitant]
     Indication: PRODUCT USED FOR UNKNOWN INDICATION
     Dosage: UNK
     Route: 065
     Dates: start: 20130309

REACTIONS (3)
  - Pneumonia [Fatal]
  - Blood creatinine increased [Not Recovered/Not Resolved]
  - Anaemia [Recovering/Resolving]
